FAERS Safety Report 13408892 (Version 3)
Quarter: 2022Q2

REPORT INFORMATION
  Report Type: Spontaneous
  Country: US (occurrence: US)
  Receive Date: 20170406
  Receipt Date: 20220530
  Transmission Date: 20220721
  Serious: No
  Sender: FDA-Public Use
  Company Number: US-JNJFOC-20170224831

PATIENT
  Age: 8 Year
  Sex: Male

DRUGS (3)
  1. RISPERDAL [Suspect]
     Active Substance: RISPERIDONE
     Indication: Attention deficit hyperactivity disorder
     Dosage: ONCE DAILY AT BEDTIME FOR 3 DAYS, FOLLOWED BY TWICE DAILY - 01 IN THE MORNING AND 01 AT BEDTIME FOR
     Route: 048
     Dates: start: 20010319
  2. RISPERDAL [Suspect]
     Active Substance: RISPERIDONE
     Route: 048
     Dates: start: 20010403
  3. RISPERDAL [Suspect]
     Active Substance: RISPERIDONE
     Dosage: 0.25 MG, 0.5 MG, 1 MG
     Route: 048
     Dates: start: 20011023, end: 20040916

REACTIONS (4)
  - Emotional disorder [Unknown]
  - Gynaecomastia [Unknown]
  - Product use in unapproved indication [Unknown]
  - Off label use [Unknown]

NARRATIVE: CASE EVENT DATE: 20010319
